FAERS Safety Report 8168828-2 (Version None)
Quarter: 2012Q1

REPORT INFORMATION
  Report Type: 
  Country: None (occurrence: None)
  Receive Date: 20120227
  Receipt Date: 20120213
  Transmission Date: 20120608
  Serious: Yes (Other)
  Sender: FDA-Public Use
  Company Number: CHPA2012US002384

PATIENT
  Age: 40 Year
  Sex: Female

DRUGS (1)
  1. EXCEDRIN (MIGRAINE) [Suspect]
     Indication: HEADACHE
     Dosage: 2 DF, ONCE/SINGLE
     Route: 048
     Dates: start: 20120126, end: 20120126

REACTIONS (9)
  - THROAT TIGHTNESS [None]
  - PRURITUS [None]
  - RASH [None]
  - HYPERSENSITIVITY [None]
  - PAPULE [None]
  - ANAPHYLACTIC SHOCK [None]
  - ERYTHEMA [None]
  - EYE SWELLING [None]
  - SWELLING FACE [None]
